FAERS Safety Report 5153635-5 (Version None)
Quarter: 2006Q4

REPORT INFORMATION
  Report Type: 
  Country: None (occurrence: None)
  Receive Date: 20061114
  Receipt Date: 20061026
  Transmission Date: 20070319
  Serious: Yes (Hospitalization)
  Sender: FDA-Public Use
  Company Number: NL-2006-032642

PATIENT
  Age: 55 Year
  Sex: Female

DRUGS (7)
  1. BETASERON [Suspect]
     Indication: RELAPSING-REMITTING MULTIPLE SCLEROSIS
     Dosage: 8 OR 16 IU, EVERY 2D, SUBCUTANEOUS
     Route: 058
     Dates: start: 20050314
  2. ESTRADIOL INJ [Concomitant]
  3. PLAVIX [Concomitant]
  4. SIMVASTATIN [Concomitant]
  5. ACETYLSALICYLIC ACID SRT [Concomitant]
  6. TRIAMTERENE AND HYDROCHLOROTHIAZIDE [Concomitant]
  7. COPAXONE [Suspect]

REACTIONS (6)
  - ABDOMINAL PAIN UPPER [None]
  - ANGINA PECTORIS [None]
  - BONE PAIN [None]
  - DYSPNOEA [None]
  - SMALL INTESTINAL PERFORATION [None]
  - TACHYCARDIA [None]
